FAERS Safety Report 12001806 (Version 1)
Quarter: 2016Q1

REPORT INFORMATION
  Report Type: Spontaneous
  Country: US (occurrence: US)
  Receive Date: 20160204
  Receipt Date: 20160204
  Transmission Date: 20160526
  Serious: No
  Sender: FDA-Public Use
  Company Number: US-PERRIGO-15US009921

PATIENT
  Age: 63 Year
  Sex: Female
  Weight: 70.3 kg

DRUGS (7)
  1. DOXEPIN                            /00138002/ [Concomitant]
     Active Substance: DOXEPIN
     Indication: INSOMNIA
  2. IBUPROFEN. [Suspect]
     Active Substance: IBUPROFEN
     Dosage: 800 MG, 2 TO 3 TIMES QD
     Route: 048
     Dates: start: 20150908, end: 20150914
  3. IBUPROFEN. [Suspect]
     Active Substance: IBUPROFEN
     Indication: PAIN
     Dosage: 800 MG, 2-3 TIMES/DAY
     Route: 048
     Dates: start: 2015, end: 2015
  4. ATORVASTATIN [Concomitant]
     Active Substance: ATORVASTATIN
     Indication: BLOOD CHOLESTEROL INCREASED
     Dosage: UNK
     Route: 065
     Dates: start: 2014
  5. BABY ASPIRIN [Concomitant]
     Active Substance: ASPIRIN
     Indication: ROUTINE HEALTH MAINTENANCE
     Dosage: UNK
     Route: 048
     Dates: start: 2014
  6. DOXEPIN                            /00138002/ [Concomitant]
     Active Substance: DOXEPIN
     Indication: PAIN
     Dosage: UNK
     Route: 065
     Dates: start: 2005
  7. LYRICA [Concomitant]
     Active Substance: PREGABALIN
     Indication: FIBROMYALGIA
     Dosage: UNK
     Route: 065
     Dates: start: 2007

REACTIONS (3)
  - Drug effect decreased [Unknown]
  - Overdose [Recovered/Resolved]
  - Incorrect drug administration duration [Recovered/Resolved]

NARRATIVE: CASE EVENT DATE: 2015
